FAERS Safety Report 22197931 (Version 2)
Quarter: 2023Q2

REPORT INFORMATION
  Report Type: Report from Study
  Country: CA (occurrence: CA)
  Receive Date: 20230411
  Receipt Date: 20230413
  Transmission Date: 20230722
  Serious: Yes (Other)
  Sender: FDA-Public Use
  Company Number: CA-HLS-202300799

PATIENT
  Age: 50 Year
  Sex: Female

DRUGS (11)
  1. CLOZARIL [Suspect]
     Active Substance: CLOZAPINE
     Indication: Product used for unknown indication
     Dosage: TAKE 6 TABLETS (600MG TOTAL) BY MOUTH EVERY NIGHT. TAKE 2 TABLETS (50MG TOTAL) BY MOUTH EVERY NIGHT.
     Route: 048
     Dates: start: 20060413
  2. NORVASC [Concomitant]
     Active Substance: AMLODIPINE BESYLATE
     Indication: Product used for unknown indication
     Dosage: TAKE 1 TABLET (5MG TOTAL) BY MOUTH 1 (ONE) TIME EACH DAY
     Route: 048
  3. FERROUS FUMARATE [Concomitant]
     Active Substance: FERROUS FUMARATE
     Indication: Product used for unknown indication
     Dosage: TAKE 1 CAPSULE (300MG TOTAL) BY MOUTH 1 (ONE) TIME EACH DAY WITH BREAKFAST.
     Route: 048
  4. HUMALOG [Concomitant]
     Active Substance: INSULIN LISPRO
     Indication: Product used for unknown indication
     Dosage: 100UNIT/ML INJECTION. ?LNJECT 6 UNITS UNDER THE SKIN 3 (THREE) TIMES A DAY WITH MEALS.
     Route: 065
  5. LANTUS SOLOSTAR [Concomitant]
     Active Substance: INSULIN GLARGINE
     Indication: Product used for unknown indication
     Dosage: 100 UNIT/ML (3 ML) INSULIN PEN. ?LNJECT 30 UNITS UNDER THE SKIN EVERY NIGHT.
     Route: 065
  6. DILAUDID [Concomitant]
     Active Substance: HYDROMORPHONE HYDROCHLORIDE
     Indication: Product used for unknown indication
     Dosage: TAKE 1 TABLET (1 MG TOTAL) BY MOUTH EVERY 4 (FOUR) HOURS IF NEEDED.
     Route: 048
  7. LOPRESSOR [Concomitant]
     Active Substance: METOPROLOL TARTRATE
     Indication: Product used for unknown indication
     Dosage: TAKE BY MOUTH 2 (TWO) TIMES A DAY.
     Route: 048
  8. GLUCOPHAGE [Concomitant]
     Active Substance: METFORMIN HYDROCHLORIDE
     Indication: Product used for unknown indication
     Dosage: TAKE 1 TABLET (500 MG TOTAL) BY MOUTH 2 (TWO) TIMES A DAY WITH MEALS.
     Route: 048
  9. SULFASALAZINE [Concomitant]
     Active Substance: SULFASALAZINE
     Indication: Product used for unknown indication
     Dosage: TAKE 1 TABLET (500 MG TOTAL) BY MOUTH 2 (TWO) TIMES A DAY. DO NOT CRUSH, CHEW, OR SPLIT.
     Route: 048
  10. SENOKOT [Concomitant]
     Active Substance: SENNOSIDES
     Indication: Product used for unknown indication
     Dosage: 8.6 MG TABLET. TAKE 2 TABLETS (17.2 MG TOTAL} BY MOUTH AT BED TIME.
     Route: 048
  11. NAPROSYN [Concomitant]
     Active Substance: NAPROXEN
     Indication: Product used for unknown indication
     Dosage: 250 MG TABLET. TAKE 2 TABLETS (500 MG TOTAL) BY MOUTH 2 (TWO) TIMES A DAY WITH MEALS.
     Route: 048

REACTIONS (21)
  - Abdominal distension [Unknown]
  - Brain neoplasm benign [Not Recovered/Not Resolved]
  - Blood pressure diastolic increased [Unknown]
  - Functional gastrointestinal disorder [Recovering/Resolving]
  - Hepatic steatosis [Unknown]
  - Product administration error [Unknown]
  - Hair growth abnormal [Unknown]
  - Non-alcoholic fatty liver [Unknown]
  - Weight increased [Unknown]
  - Gallbladder atrophy [Unknown]
  - Blood glucose increased [Unknown]
  - Hallucination, auditory [Unknown]
  - Haemoglobin decreased [Unknown]
  - Hepatomegaly [Unknown]
  - Inadequate housing [Unknown]
  - Electrocardiogram T wave abnormal [Unknown]
  - Flatulence [Unknown]
  - Blood potassium decreased [Unknown]
  - Electrocardiogram QT prolonged [Unknown]
  - Cholelithiasis [Unknown]
  - Steatohepatitis [Unknown]

NARRATIVE: CASE EVENT DATE: 20230222
